FAERS Safety Report 8460060-8 (Version None)
Quarter: 2012Q2

REPORT INFORMATION
  Report Type: 
  Country: None (occurrence: None)
  Receive Date: 20120622
  Receipt Date: 20120619
  Transmission Date: 20120825
  Serious: Yes (Other)
  Sender: FDA-Public Use
  Company Number: US-BAYER-2012-060765

PATIENT
  Sex: Male

DRUGS (2)
  1. CIPROFLOXACIN HCL [Suspect]
     Dosage: 1 DF, UNK
  2. KENALOG [Concomitant]

REACTIONS (1)
  - MUSCLE RUPTURE [None]
